FAERS Safety Report 20930711 (Version 3)
Quarter: 2022Q3

REPORT INFORMATION
  Report Type: Spontaneous
  Country: US (occurrence: None)
  Receive Date: 20220608
  Receipt Date: 20220914
  Transmission Date: 20221027
  Serious: No
  Sender: FDA-Public Use
  Company Number: US-ROCHE-3081227

PATIENT
  Sex: Female

DRUGS (4)
  1. ENSPRYNG [Suspect]
     Active Substance: SATRALIZUMAB-MWGE
     Indication: Neuromyelitis optica spectrum disorder
     Dosage: FORM STRENGTH : 120MG/ML , 1 SYRINGE INJECTED AT WEEK 0, 2 AND 4, THEN EVERY 4 WEEKS.
     Route: 058
     Dates: start: 20220325
  2. ENSPRYNG [Suspect]
     Active Substance: SATRALIZUMAB-MWGE
     Dosage: FORM STRENGTH :  120MG/ML
     Route: 058
     Dates: start: 20220428
  3. LOSARTAN [Concomitant]
     Active Substance: LOSARTAN
     Route: 048
  4. ATENOLOL [Concomitant]
     Active Substance: ATENOLOL
     Route: 048
     Dates: start: 20170228

REACTIONS (2)
  - Headache [Unknown]
  - Aura [Unknown]
